FAERS Safety Report 7883982-5 (Version None)
Quarter: 2011Q4

REPORT INFORMATION
  Report Type: 
  Country: None (occurrence: None)
  Receive Date: 20111102
  Receipt Date: 20111021
  Transmission Date: 20120403
  Serious: Yes (Other)
  Sender: FDA-Public Use
  Company Number: PHFR2011GB01273

PATIENT
  Sex: Male
  Weight: 64 kg

DRUGS (5)
  1. LESCOL XL [Suspect]
     Indication: CEREBROVASCULAR ACCIDENT
     Dosage: 80 MG, DAILY
     Route: 048
     Dates: start: 20110112
  2. BENDROFLUAZIDE [Concomitant]
     Indication: HYPERTENSION
     Dosage: 2.5 MG/DAY
     Route: 048
     Dates: start: 20091104
  3. CLOPIDOGREL [Concomitant]
     Indication: CEREBROVASCULAR ACCIDENT
     Dosage: 75 MG/DAY
     Route: 048
     Dates: start: 20050914
  4. LESCOL XL [Suspect]
     Dosage: 80 MG, DAILY
     Route: 048
     Dates: end: 20110801
  5. RANITIDINE [Concomitant]
     Indication: GASTRITIS
     Dosage: 300 MG/DAY
     Route: 048
     Dates: start: 20090619

REACTIONS (1)
  - MIGRAINE [None]
